FAERS Safety Report 24610359 (Version 1)
Quarter: 2024Q4

REPORT INFORMATION
  Report Type: Spontaneous
  Country: US (occurrence: US)
  Receive Date: 20241112
  Receipt Date: 20241112
  Transmission Date: 20250115
  Serious: No
  Sender: PFIZER
  Company Number: US-PFIZER INC-202400297887

PATIENT
  Sex: Female

DRUGS (1)
  1. CRISABOROLE [Suspect]
     Active Substance: CRISABOROLE
     Indication: Psoriasis

REACTIONS (2)
  - Off label use [Recovered/Resolved]
  - Drug ineffective for unapproved indication [Recovered/Resolved]
